FAERS Safety Report 19451951 (Version 2)
Quarter: 2021Q2

REPORT INFORMATION
  Report Type: Other
  Country: PL (occurrence: PL)
  Receive Date: 20210623
  Receipt Date: 20210630
  Transmission Date: 20210717
  Serious: Yes (Hospitalization)
  Sender: FDA-Public Use
  Company Number: PL-ROCHE-2850993

PATIENT
  Age: 37 Year
  Sex: Male

DRUGS (3)
  1. TACROLIMUS. [Suspect]
     Active Substance: TACROLIMUS
     Indication: IMMUNOSUPPRESSANT DRUG THERAPY
     Route: 065
     Dates: start: 2016
  2. MYCOPHENOLATE MOFETIL. [Suspect]
     Active Substance: MYCOPHENOLATE MOFETIL
     Indication: IMMUNOSUPPRESSANT DRUG THERAPY
     Route: 065
     Dates: start: 2016
  3. PREDNISONE. [Suspect]
     Active Substance: PREDNISONE
     Indication: IMMUNOSUPPRESSANT DRUG THERAPY
     Route: 065
     Dates: start: 2016

REACTIONS (11)
  - Liver injury [Recovered/Resolved]
  - Cardiac failure [Recovered/Resolved]
  - Glucose tolerance impaired [Recovered/Resolved]
  - Haemochromatosis [Recovered/Resolved]
  - Hepatic steatosis [Recovered/Resolved]
  - Transplant dysfunction [Recovered/Resolved]
  - Enterococcal infection [Recovered/Resolved]
  - Anaemia [Recovered/Resolved]
  - Cytomegalovirus infection [Recovered/Resolved]
  - Left ventricular hypertrophy [Recovered/Resolved]
  - Urinary tract infection [Recovered/Resolved]

NARRATIVE: CASE EVENT DATE: 201610
